FAERS Safety Report 6176127-3 (Version None)
Quarter: 2009Q2

REPORT INFORMATION
  Report Type: 
  Country: None (occurrence: None)
  Receive Date: 20090501
  Receipt Date: 20090420
  Transmission Date: 20091009
  Serious: Yes (Hospitalization)
  Sender: FDA-Public Use
  Company Number: IT-GENENTECH-281881

PATIENT
  Sex: Female

DRUGS (6)
  1. MABTHERA [Suspect]
     Indication: NON-HODGKIN'S LYMPHOMA
     Dosage: 600 MG, UNK
     Route: 042
     Dates: start: 20090130, end: 20090227
  2. FLUDARABINE PHOSPHATE [Suspect]
     Indication: NON-HODGKIN'S LYMPHOMA
     Dosage: 60 MG, UNK
     Route: 048
     Dates: start: 20090130, end: 20090302
  3. ENDOXAN [Concomitant]
     Indication: DRUG USE FOR UNKNOWN INDICATION
  4. ANTIBIOTICS (NOT SPECIFIED) [Concomitant]
     Indication: DRUG USE FOR UNKNOWN INDICATION
  5. ANTIHYPERTENSIVE AGENT [Concomitant]
     Indication: DRUG USE FOR UNKNOWN INDICATION
  6. ANTIDEPRESSANT [Concomitant]

REACTIONS (3)
  - MUCOSAL INFLAMMATION [None]
  - PULMONARY OEDEMA [None]
  - REVERSIBLE POSTERIOR LEUKOENCEPHALOPATHY SYNDROME [None]
